FAERS Safety Report 6771115-8 (Version None)
Quarter: 2010Q2

REPORT INFORMATION
  Report Type: 
  Country: None (occurrence: None)
  Receive Date: 20100527
  Receipt Date: 20100512
  Transmission Date: 20101027
  Serious: Yes (Life-Threatening, Hospitalization)
  Sender: FDA-Public Use
  Company Number: GP-10-05-0017

PATIENT
  Age: 49 Year
  Sex: Female

DRUGS (4)
  1. GABAPENTIN [Suspect]
     Indication: RESTLESS LEGS SYNDROME
     Dosage: 1200MG, T.I.D., P.O.
     Route: 048
  2. MIRAPEX [Concomitant]
  3. CYMBALTA [Concomitant]
  4. BENADRYL [Concomitant]

REACTIONS (11)
  - FEELING ABNORMAL [None]
  - HERPES ZOSTER [None]
  - HYPERAESTHESIA [None]
  - HYPERTENSION [None]
  - HYPOAESTHESIA [None]
  - INSOMNIA [None]
  - NERVE INJURY [None]
  - PAIN IN EXTREMITY [None]
  - SUICIDAL IDEATION [None]
  - URTICARIA [None]
  - VISUAL IMPAIRMENT [None]
